FAERS Safety Report 15140018 (Version 1)
Quarter: 2018Q3

REPORT INFORMATION
  Report Type: Report from Study
  Country: US (occurrence: US)
  Receive Date: 20180713
  Receipt Date: 20180713
  Transmission Date: 20181010
  Serious: Yes (Hospitalization)
  Sender: FDA-Public Use
  Company Number: US-BAYER-2018-127374

PATIENT
  Age: 59 Year
  Sex: Female

DRUGS (2)
  1. CLOPIDOGREL [Interacting]
     Active Substance: CLOPIDOGREL BISULFATE
  2. ASPIRIN. [Suspect]
     Active Substance: ASPIRIN

REACTIONS (6)
  - Pyogenic granuloma [None]
  - Conjunctival oedema [None]
  - Conjunctival haemorrhage [None]
  - Eye haemorrhage [None]
  - Haemorrhagic diathesis [None]
  - Labelled drug-drug interaction medication error [None]
